FAERS Safety Report 20882731 (Version 1)
Quarter: 2022Q2

REPORT INFORMATION
  Report Type: Spontaneous
  Country: US (occurrence: None)
  Receive Date: 20220526
  Receipt Date: 20220526
  Transmission Date: 20220721
  Serious: Yes (Other)
  Sender: FDA-Public Use
  Company Number: None

PATIENT
  Age: 63 Year
  Sex: Female

DRUGS (1)
  1. DULOXETINE [Suspect]
     Active Substance: DULOXETINE
     Indication: Depression
     Dosage: FREQUENCY : DAILY;?
     Route: 048
     Dates: start: 20200704, end: 20200709

REACTIONS (8)
  - Product substitution issue [None]
  - Anxiety [None]
  - Tremor [None]
  - Nausea [None]
  - Vomiting [None]
  - Decreased appetite [None]
  - Gait disturbance [None]
  - Suicidal ideation [None]

NARRATIVE: CASE EVENT DATE: 20200704
